FAERS Safety Report 9004043 (Version 1)
Quarter: 2013Q1

REPORT INFORMATION
  Report Type: Spontaneous
  Country: FR (occurrence: FR)
  Receive Date: 20130109
  Receipt Date: 20130109
  Transmission Date: 20140127
  Serious: Yes (Hospitalization)
  Sender: FDA-Public Use
  Company Number: FR-009507513-1301FRA001445

PATIENT
  Sex: Male

DRUGS (4)
  1. INEGY [Suspect]
     Indication: DYSLIPIDAEMIA
     Dosage: UNK
     Route: 048
     Dates: start: 2005, end: 201206
  2. DIAMICRON [Concomitant]
     Indication: TYPE 2 DIABETES MELLITUS
     Dosage: UNK
     Route: 048
     Dates: start: 2005
  3. COAPROVEL [Concomitant]
     Dosage: UNK
     Route: 048
     Dates: start: 2005
  4. PANTOPRAZOLE [Concomitant]
     Dosage: UNK
     Route: 048
     Dates: start: 2005

REACTIONS (1)
  - Tendon rupture [Recovering/Resolving]
